FAERS Safety Report 23805677 (Version 2)
Quarter: 2024Q2

REPORT INFORMATION
  Report Type: Spontaneous
  Country: PL (occurrence: PL)
  Receive Date: 20240502
  Receipt Date: 20240503
  Transmission Date: 20240716
  Serious: Yes (Hospitalization, Other)
  Sender: FDA-Public Use
  Company Number: PL-ROCHE-3549836

PATIENT
  Sex: Male

DRUGS (3)
  1. VALGANCICLOVIR [Suspect]
     Active Substance: VALGANCICLOVIR
     Indication: Product used for unknown indication
  2. LUCENTIS [Concomitant]
     Active Substance: RANIBIZUMAB
     Indication: Retinopathy
  3. NITROUS OXIDE [Concomitant]
     Active Substance: NITROUS OXIDE

REACTIONS (3)
  - Incarcerated inguinal hernia [Unknown]
  - Parainfluenzae virus infection [Unknown]
  - Liver disorder [Unknown]
